FAERS Safety Report 9702492 (Version 2)
Quarter: 2013Q4

REPORT INFORMATION
  Report Type: Spontaneous
  Country: US (occurrence: US)
  Receive Date: 20131121
  Receipt Date: 20131226
  Transmission Date: 20140711
  Serious: Yes (Hospitalization, Other)
  Sender: FDA-Public Use
  Company Number: US-B.I. PHARMACEUTICALS,INC./RIDGEFIELD-2013-BI-37548BP

PATIENT
  Age: 68 Year
  Sex: Male
  Weight: 81 kg

DRUGS (21)
  1. SPIRIVA [Suspect]
     Indication: CHRONIC OBSTRUCTIVE PULMONARY DISEASE
     Dosage: 18 MCG
     Route: 055
     Dates: start: 2004
  2. SPIRIVA [Suspect]
     Dosage: 18 MCG
     Route: 048
     Dates: start: 2004
  3. ADVAIR [Concomitant]
     Indication: CHRONIC OBSTRUCTIVE PULMONARY DISEASE
     Dosage: STRENGTH: 250/50; DAILY DOSE: 500/100
     Route: 055
     Dates: start: 20121015
  4. ALBUTEROL [Concomitant]
     Indication: CHRONIC OBSTRUCTIVE PULMONARY DISEASE
     Dosage: 5 ML
     Route: 055
  5. DIGOXIN [Concomitant]
     Route: 048
  6. GUAIFENESIN AC [Concomitant]
     Dosage: DOSE PER APPLICATION: 100-10 MG/ 5 ML
     Route: 048
  7. LEVAQUIN [Concomitant]
     Route: 048
  8. LEXAPRO [Concomitant]
     Route: 048
  9. TARCEVA [Concomitant]
     Route: 048
  10. ESCITALOPRAM OXALATE [Concomitant]
     Route: 048
  11. MINOCYCLINE HCL [Concomitant]
     Route: 048
  12. POTASSIUM CHLORIDE [Concomitant]
  13. ATROPINE SULFATE [Concomitant]
     Route: 030
  14. VENTOLIN HFA [Concomitant]
     Dosage: 2 ANZ
     Route: 055
     Dates: start: 20111215
  15. OXYGEN [Concomitant]
     Dosage: DOSE PER APPLICATION: 3 L
     Route: 055
  16. POTASSIUM CHLORIDE [Concomitant]
  17. DOXYCYCLINE HYCLATE [Concomitant]
     Dosage: 200 MG
     Route: 048
     Dates: start: 20120726
  18. DUONEB [Concomitant]
     Dosage: 4 ANZ
     Route: 055
     Dates: start: 20120726
  19. BACTRIM DS [Concomitant]
     Dosage: 2 ANZ
     Route: 048
     Dates: start: 20120811
  20. XANAX XR [Concomitant]
     Route: 048
  21. LEVETIRACETAM [Concomitant]
     Dosage: 1000 MG
     Route: 048

REACTIONS (9)
  - Brain neoplasm [Recovered/Resolved]
  - Colon cancer [Recovered/Resolved]
  - Lung neoplasm malignant [Recovered/Resolved]
  - Lung neoplasm malignant [Not Recovered/Not Resolved]
  - Aortic aneurysm [Recovered/Resolved]
  - Pneumonia [Recovered/Resolved]
  - Hip fracture [Recovered/Resolved]
  - Neuropathy peripheral [Not Recovered/Not Resolved]
  - Incorrect route of drug administration [Recovered/Resolved]
